FAERS Safety Report 6480823-8 (Version None)
Quarter: 2009Q4

REPORT INFORMATION
  Report Type: 
  Country: None (occurrence: None)
  Receive Date: 20091203
  Receipt Date: 20091123
  Transmission Date: 20100525
  Serious: Yes (Other)
  Sender: FDA-Public Use
  Company Number: 09US005283

PATIENT
  Age: 55 Year
  Sex: Female
  Weight: 69.4 kg

DRUGS (6)
  1. ACETAMINOPHEN [Suspect]
     Indication: BACK PAIN
     Dosage: 5000 MG, QD, ORAL
     Route: 048
     Dates: start: 19990101, end: 20090401
  2. MULTIPLE VITAMINS (ASCORBIC ACID, ERGOCALCIFEROL, FOLIC ACID, RETINOL, [Concomitant]
  3. VITAMIN B (THIAMINE HYDROCHLORIDE) [Concomitant]
  4. CALCIUM (CALCIUM GLUCONATE) [Concomitant]
  5. STATIN (TIABENDAZOLE) [Concomitant]
  6. COENZYME Q10 [Concomitant]

REACTIONS (5)
  - BLOOD CHOLESTEROL INCREASED [None]
  - CORONARY ARTERY DISEASE [None]
  - INCORRECT DRUG ADMINISTRATION DURATION [None]
  - LIVER INJURY [None]
  - OVERDOSE [None]
